FAERS Safety Report 8563861 (Version 3)
Quarter: 2013Q2

REPORT INFORMATION
  Report Type: Spontaneous
  Country: US (occurrence: US)
  Receive Date: 20120515
  Receipt Date: 20130401
  Transmission Date: 20140414
  Serious: Yes (Death, Other)
  Sender: FDA-Public Use
  Company Number: US-BAYER-2012-046742

PATIENT
  Age: 17 Year
  Sex: Female
  Weight: 117.46 kg

DRUGS (9)
  1. GIANVI [Suspect]
     Indication: MENSTRUAL DISORDER
     Dosage: UNK
     Dates: start: 2009, end: 20110712
  2. ROCEPHIN [Concomitant]
  3. AUGMENTIN [Concomitant]
  4. CIPRODEX [Concomitant]
  5. AMOXICLAV [Concomitant]
  6. GARDASIL [Concomitant]
  7. ALBUTEROL [Concomitant]
     Indication: INHALATION THERAPY
     Dosage: UNK UNK, PRN
     Route: 045
     Dates: start: 2000, end: 2011
  8. ADVIL [Concomitant]
     Indication: PAIN IN EXTREMITY
     Dosage: UNK
     Dates: start: 20110712
  9. ADVIL [Concomitant]
     Indication: HEADACHE

REACTIONS (4)
  - Pulmonary embolism [Fatal]
  - Deep vein thrombosis [Fatal]
  - Off label use [None]
  - Circulatory collapse [None]
